FAERS Safety Report 7198252-0 (Version None)
Quarter: 2010Q4

REPORT INFORMATION
  Report Type: 
  Country: None (occurrence: None)
  Receive Date: 20101227
  Receipt Date: 20101213
  Transmission Date: 20110411
  Serious: Yes (Hospitalization)
  Sender: FDA-Public Use
  Company Number: PHHY2010US84736

PATIENT
  Sex: Female

DRUGS (1)
  1. CLOZARIL [Suspect]
     Dosage: UNK

REACTIONS (6)
  - ATRIAL FIBRILLATION [None]
  - BRONCHIAL HYPERREACTIVITY [None]
  - DEMENTIA WITH LEWY BODIES [None]
  - PNEUMONIA [None]
  - RENAL FAILURE [None]
  - URINARY TRACT INFECTION [None]
